FAERS Safety Report 8808573 (Version 2)
Quarter: 2014Q1

REPORT INFORMATION
  Report Type: Report from Study
  Country: IL (occurrence: IL)
  Receive Date: 20120926
  Receipt Date: 20140131
  Transmission Date: 20141002
  Serious: Yes (Hospitalization)
  Sender: FDA-Public Use
  Company Number: PHHY2012IL083148

PATIENT
  Age: 51 Year
  Sex: Female

DRUGS (3)
  1. SANDOSTATIN LAR [Suspect]
     Indication: CARCINOID TUMOUR
     Dosage: 30 MG,EVERY 28 DAYS
     Route: 030
     Dates: start: 20091022
  2. SANDOSTATIN LAR [Suspect]
     Dosage: UNK UKN, UNK
     Route: 030
     Dates: start: 20120923
  3. SANDOSTATIN LAR [Suspect]
     Dosage: UNK UKN, UNK
     Route: 030
     Dates: start: 20131226

REACTIONS (6)
  - Chest pain [Not Recovered/Not Resolved]
  - Ear infection [Unknown]
  - Nasopharyngitis [Recovering/Resolving]
  - Pyrexia [Unknown]
  - Pharyngitis [Unknown]
  - Dyspnoea [Recovering/Resolving]
